FAERS Safety Report 24356276 (Version 1)
Quarter: 2024Q3

REPORT INFORMATION
  Report Type: Spontaneous
  Country: CN (occurrence: CN)
  Receive Date: 20240924
  Receipt Date: 20240924
  Transmission Date: 20241016
  Serious: Yes (Hospitalization, Other)
  Sender: RANBAXY
  Company Number: CN-SUN PHARMACEUTICAL INDUSTRIES LTD-2024R1-469280

PATIENT
  Sex: Female

DRUGS (4)
  1. ATOSIBAN [Suspect]
     Active Substance: ATOSIBAN
     Indication: Uterine contractions during pregnancy
     Route: 064
  2. RITODRINE [Suspect]
     Active Substance: RITODRINE
     Indication: Uterine contractions during pregnancy
     Route: 064
  3. IRON SUCROSE [Suspect]
     Active Substance: IRON SUCROSE
     Indication: Uterine contractions during pregnancy
     Route: 064
  4. DEXAMETHASONE [Suspect]
     Active Substance: DEXAMETHASONE
     Indication: Uterine contractions during pregnancy
     Route: 064

REACTIONS (6)
  - Asphyxia [Unknown]
  - Foetal exposure during pregnancy [Unknown]
  - Premature baby [Unknown]
  - Low birth weight baby [Unknown]
  - Respiratory distress [Unknown]
  - Pneumonia [Unknown]
